FAERS Safety Report 8261262-6 (Version None)
Quarter: 2012Q2

REPORT INFORMATION
  Report Type: 
  Country: None (occurrence: None)
  Receive Date: 20120405
  Receipt Date: 20120329
  Transmission Date: 20120825
  Serious: Yes (Other)
  Sender: FDA-Public Use
  Company Number: PT-JNJFOC-20120400511

PATIENT
  Sex: Male

DRUGS (6)
  1. STELARA [Suspect]
     Route: 058
  2. CORTICOSTEROIDS [Concomitant]
     Indication: PRODUCT USED FOR UNKNOWN INDICATION
     Route: 048
  3. STELARA [Suspect]
     Route: 058
  4. STELARA [Suspect]
     Route: 058
  5. METHOTREXATE [Concomitant]
     Indication: PRODUCT USED FOR UNKNOWN INDICATION
     Route: 065
  6. STELARA [Suspect]
     Indication: PSORIASIS
     Dosage: 2 MONTHS AGO
     Route: 058

REACTIONS (1)
  - TRANSAMINASES INCREASED [None]
